FAERS Safety Report 17559439 (Version 1)
Quarter: 2020Q1

REPORT INFORMATION
  Report Type: Report from Study
  Country: US (occurrence: US)
  Receive Date: 20200319
  Receipt Date: 20200319
  Transmission Date: 20200409
  Serious: Yes (Hospitalization, Other)
  Sender: FDA-Public Use
  Company Number: US-ROCHE-2352142

PATIENT
  Age: 48 Year
  Sex: Male
  Weight: 97.61 kg

DRUGS (6)
  1. NALTREXONE [Concomitant]
     Active Substance: NALTREXONE
     Route: 048
  2. OCREVUS [Suspect]
     Active Substance: OCRELIZUMAB
     Indication: PRIMARY PROGRESSIVE MULTIPLE SCLEROSIS
     Dosage: DATE OF TREATMENT:19/JUN/2019?PREVIOUS DATE OF TREATMENT = 19/JUN/2018, 31/DEC/2018, 10/OCT/2019 AND
     Route: 042
     Dates: start: 20180604
  3. OCREVUS [Suspect]
     Active Substance: OCRELIZUMAB
     Indication: SECONDARY PROGRESSIVE MULTIPLE SCLEROSIS
     Route: 042
     Dates: start: 20181231
  4. NALTREXONE [Concomitant]
     Active Substance: NALTREXONE
     Dosage: FOR BLADDER
     Route: 048
  5. OCREVUS [Suspect]
     Active Substance: OCRELIZUMAB
     Indication: MULTIPLE SCLEROSIS
     Dosage: DATE OF TREATMENT:19/JUN/2019
     Route: 042
     Dates: start: 20180618
  6. OCREVUS [Suspect]
     Active Substance: OCRELIZUMAB
     Route: 042
     Dates: start: 201806

REACTIONS (11)
  - Muscle tightness [Not Recovered/Not Resolved]
  - Haematoma [Not Recovered/Not Resolved]
  - Silent myocardial infarction [Recovered/Resolved]
  - Urinary tract infection [Unknown]
  - Depression [Unknown]
  - Myocardial infarction [Unknown]
  - Muscular weakness [Not Recovered/Not Resolved]
  - Motor dysfunction [Not Recovered/Not Resolved]
  - Fall [Unknown]
  - Head injury [Unknown]
  - Cerebral haemorrhage [Recovering/Resolving]

NARRATIVE: CASE EVENT DATE: 201812
